FAERS Safety Report 23872151 (Version 1)
Quarter: 2024Q2

REPORT INFORMATION
  Report Type: Spontaneous
  Country: US (occurrence: US)
  Receive Date: 20240520
  Receipt Date: 20240520
  Transmission Date: 20240716
  Serious: No
  Sender: FDA-Public Use
  Company Number: US-DRL-USA-LIT/USA/24/0007169

PATIENT
  Age: 69 Year
  Sex: Male

DRUGS (4)
  1. ESZOPICLONE [Suspect]
     Active Substance: ESZOPICLONE
     Indication: Middle insomnia
  2. SUVOREXANT [Concomitant]
     Active Substance: SUVOREXANT
     Indication: Middle insomnia
  3. SUVOREXANT [Concomitant]
     Active Substance: SUVOREXANT
  4. LORAZEPAM [Concomitant]
     Active Substance: LORAZEPAM
     Indication: Middle insomnia

REACTIONS (1)
  - Drug ineffective [Unknown]
